FAERS Safety Report 15653685 (Version 1)
Quarter: 2018Q4

REPORT INFORMATION
  Report Type: Spontaneous
  Country: DE (occurrence: DE)
  Receive Date: 20181124
  Receipt Date: 20181124
  Transmission Date: 20190205
  Serious: Yes (Other)
  Sender: FDA-Public Use
  Company Number: PHHY2018DE142742

PATIENT
  Age: 48 Year
  Sex: Male
  Weight: 76 kg

DRUGS (17)
  1. PLIAZON [Concomitant]
     Indication: PROPHYLAXIS
     Dosage: UNK UNK, PRN
     Route: 061
  2. FERROSANOL [Concomitant]
     Active Substance: FERROUS GLUCONATE
     Dosage: 80-100 MG, UNK
     Route: 048
     Dates: start: 20180514, end: 20181030
  3. VIGANTOL [Concomitant]
     Active Substance: CHOLECALCIFEROL
     Indication: PRODUCT USED FOR UNKNOWN INDICATION
     Dosage: 1000 IU, QD
     Route: 048
     Dates: start: 20180518
  4. PANITUMUMAB [Suspect]
     Active Substance: PANITUMUMAB
     Indication: COLORECTAL CANCER METASTATIC
     Dosage: 460 MG, UNK
     Route: 042
  5. BEPANTEN [Concomitant]
     Indication: PARONYCHIA
     Dosage: UNK UNK, PRN
     Route: 061
     Dates: start: 20180627, end: 20180717
  6. MONO EMBOLEX [Concomitant]
     Active Substance: CERTOPARIN SODIUM
     Indication: PROPHYLAXIS
     Dosage: 3000 IU, QD
     Route: 058
     Dates: start: 20180412, end: 20180518
  7. FLUOROURACIL. [Suspect]
     Active Substance: FLUOROURACIL
     Indication: COLORECTAL CANCER METASTATIC
     Dosage: 4650 MG, UNK
     Route: 042
  8. FOLINIC ACID [Suspect]
     Active Substance: LEUCOVORIN
     Indication: COLORECTAL CANCER METASTATIC
     Dosage: 780 MG, UNK
     Route: 065
  9. BETAISODONA [Concomitant]
     Active Substance: POVIDONE-IODINE
     Indication: PARONYCHIA
     Dosage: UNK, PRN
     Route: 061
  10. PLIAZON [Concomitant]
     Dosage: UNK UNK, AS NECESSARY
     Route: 061
     Dates: start: 20180516, end: 20181029
  11. FLUOROURACIL. [Suspect]
     Active Substance: FLUOROURACIL
     Dosage: 800 MG, UNK
     Route: 040
  12. OXALIPLATIN. [Suspect]
     Active Substance: OXALIPLATIN
     Indication: COLORECTAL CANCER METASTATIC
     Dosage: 165 MG, UNK
     Route: 065
  13. GLANDOMED [Concomitant]
     Indication: PROPHYLAXIS
     Dosage: UNK UNK, BID
     Route: 048
  14. LEVOFLOXACIN. [Concomitant]
     Active Substance: LEVOFLOXACIN
     Indication: INFECTION
     Dosage: 500 MG, BID
     Route: 048
     Dates: start: 20180530, end: 20180605
  15. DOXY M [Concomitant]
     Indication: PROPHYLAXIS
     Dosage: 100 MG, QD
     Route: 048
     Dates: start: 20180516, end: 20180517
  16. FERROSANOL [Concomitant]
     Active Substance: FERROUS GLUCONATE
     Indication: ANAEMIA
     Dosage: 100 MG, UNK (80-100 MG)
     Route: 048
  17. MOVICOL [Concomitant]
     Active Substance: POLYETHYLENE GLYCOL 3350\POTASSIUM CHLORIDE\SODIUM BICARBONATE\SODIUM CHLORIDE
     Indication: CONSTIPATION
     Dosage: 27.4 MG, QD (13.7 MG, BID)
     Route: 048
     Dates: start: 20180716, end: 20180727

REACTIONS (3)
  - Dermatitis acneiform [Recovering/Resolving]
  - Vision blurred [Unknown]
  - Dry eye [Unknown]

NARRATIVE: CASE EVENT DATE: 20181009
